FAERS Safety Report 9102427 (Version 1)
Quarter: 2013Q1

REPORT INFORMATION
  Report Type: Spontaneous
  Country: FR (occurrence: FR)
  Receive Date: 20130218
  Receipt Date: 20130218
  Transmission Date: 20140127
  Serious: No
  Sender: FDA-Public Use
  Company Number: FR-ROCHE-1191293

PATIENT
  Age: 3 Year
  Sex: Female
  Weight: 16 kg

DRUGS (5)
  1. TAMIFLU [Suspect]
     Indication: INFLUENZA
     Route: 048
     Dates: start: 20130212, end: 20130212
  2. TAMIFLU [Suspect]
     Dosage: TREATMENT CONTINUED WITH A DURATION OF 5 DAYS (UNSPECIFIED)
     Route: 048
  3. DOLIPRANE [Concomitant]
  4. ADVIL [Concomitant]
  5. RHINOTROPHYL [Concomitant]

REACTIONS (3)
  - Medication error [Unknown]
  - Incorrect dose administered [Unknown]
  - No adverse event [Unknown]
